FAERS Safety Report 7778563-8 (Version None)
Quarter: 2011Q3

REPORT INFORMATION
  Report Type: 
  Country: None (occurrence: None)
  Receive Date: 20110926
  Receipt Date: 20110914
  Transmission Date: 20111222
  Serious: Yes (Hospitalization)
  Sender: FDA-Public Use
  Company Number: US-BAYER-2011-027248

PATIENT
  Age: 26 Year
  Sex: Female
  Weight: 59.41 kg

DRUGS (2)
  1. YASMIN [Suspect]
     Indication: PREMENSTRUAL SYNDROME
     Dosage: UNK
     Dates: start: 20011101, end: 20011201
  2. YASMIN [Suspect]
     Indication: CONTRACEPTION
     Dosage: UNK
     Route: 048
     Dates: start: 20011101, end: 20020101

REACTIONS (7)
  - CHEST PAIN [None]
  - LOWER EXTREMITY MASS [None]
  - PULMONARY EMBOLISM [None]
  - VARICOSE VEIN [None]
  - FEAR [None]
  - PAIN [None]
  - DYSPNOEA [None]
